FAERS Safety Report 21961957 (Version 5)
Quarter: 2024Q1

REPORT INFORMATION
  Report Type: Report from Study
  Country: CA (occurrence: CA)
  Receive Date: 20230207
  Receipt Date: 20240325
  Transmission Date: 20240409
  Serious: Yes (Hospitalization, Other)
  Sender: FDA-Public Use
  Company Number: CA-GLAXOSMITHKLINE-CA2023AMR014565

PATIENT

DRUGS (11)
  1. MEPOLIZUMAB [Suspect]
     Active Substance: MEPOLIZUMAB
     Indication: Asthma
     Dosage: 100 MG, Q4W
     Route: 058
     Dates: start: 20180608
  2. MEPOLIZUMAB [Suspect]
     Active Substance: MEPOLIZUMAB
     Dosage: 100 MG, Q4W
     Route: 058
     Dates: start: 20180608
  3. MEPOLIZUMAB [Suspect]
     Active Substance: MEPOLIZUMAB
     Dosage: 100 MG, Q4W
     Route: 058
     Dates: start: 20180608
  4. MEPOLIZUMAB [Suspect]
     Active Substance: MEPOLIZUMAB
     Indication: Asthma
     Dosage: 100 MG, Q4W
     Route: 058
     Dates: start: 20180608
  5. COVID-19 VACCINE NOS [Suspect]
     Active Substance: COVID-19 VACCINE NOS
     Indication: Prophylaxis
     Dosage: UNK
     Dates: start: 20231122
  6. INFLUENZA VIRUS VACCINE [Suspect]
     Active Substance: INFLUENZA VIRUS VACCINE
     Indication: Prophylaxis
     Dosage: UNK
     Dates: start: 20231025
  7. VITAMIN D [Concomitant]
     Active Substance: VITAMIN D NOS
     Indication: Product used for unknown indication
     Dosage: 10000 IU, WE
     Route: 048
  8. SYNTHROID [Concomitant]
     Active Substance: LEVOTHYROXINE SODIUM
     Indication: Product used for unknown indication
     Dosage: 150 UG
  9. HYDROMORPHONE [Concomitant]
     Active Substance: HYDROMORPHONE
     Indication: Product used for unknown indication
     Dosage: 1 MG, TID
  10. TYLENOL [Concomitant]
     Active Substance: ACETAMINOPHEN
     Indication: Product used for unknown indication
     Dosage: 500 MG, QID, PRN
  11. VALSARTAN [Concomitant]
     Active Substance: VALSARTAN
     Indication: Product used for unknown indication
     Dosage: UNK

REACTIONS (12)
  - Neck surgery [Unknown]
  - Pneumonia [Recovered/Resolved]
  - Cancer cells present [Unknown]
  - Limb injury [Recovered/Resolved]
  - Nodule [Not Recovered/Not Resolved]
  - Contusion [Unknown]
  - Tenderness [Unknown]
  - Mass [Unknown]
  - Dizziness [Recovered/Resolved]
  - Dysphonia [Unknown]
  - Blood pressure decreased [Unknown]
  - Swelling [Recovering/Resolving]

NARRATIVE: CASE EVENT DATE: 20240116
